FAERS Safety Report 9958576 (Version 2)
Quarter: 2015Q3

REPORT INFORMATION
  Report Type: Report from Study
  Country: US (occurrence: US)
  Receive Date: 20140305
  Receipt Date: 20150930
  Transmission Date: 20151125
  Serious: Yes (Other)
  Sender: FDA-Public Use
  Company Number: US-ROCHE-1339294

PATIENT
  Age: 59 Year
  Sex: Male

DRUGS (26)
  1. LUCENTIS [Suspect]
     Active Substance: RANIBIZUMAB
     Indication: DIABETIC RETINOPATHY
     Route: 050
  2. LUCENTIS [Suspect]
     Active Substance: RANIBIZUMAB
     Indication: DIABETIC RETINAL OEDEMA
  3. KENALOG [Concomitant]
     Active Substance: TRIAMCINOLONE ACETONIDE
     Route: 065
     Dates: start: 2009
  4. GLUCOVANCE [Concomitant]
     Active Substance: GLYBURIDE\METFORMIN HYDROCHLORIDE
     Route: 048
  5. MOEXIPRIL HYDROCHLORIDE. [Concomitant]
     Active Substance: MOEXIPRIL HYDROCHLORIDE
     Dosage: QD
     Route: 048
  6. HUMULIN 70/30 [Concomitant]
     Active Substance: INSULIN HUMAN
     Dosage: 35 UNITS QHS
     Route: 065
  7. COMBIGAN [Concomitant]
     Active Substance: BRIMONIDINE TARTRATE\TIMOLOL MALEATE
     Dosage: GTT BID OU
     Route: 047
  8. LUCENTIS [Suspect]
     Active Substance: RANIBIZUMAB
     Indication: DIABETIC RETINOPATHY
     Dosage: 0.5 MG OU AT 4 TO 6 WEEK INTERVALS
     Route: 050
     Dates: start: 20100614
  9. AVASTIN [Suspect]
     Active Substance: BEVACIZUMAB
     Indication: DIABETIC RETINOPATHY
  10. NOREPINEPHRINE [Concomitant]
     Active Substance: NOREPINEPHRINE\NOREPINEPHRINE BITARTRATE
     Route: 065
  11. LUCENTIS [Suspect]
     Active Substance: RANIBIZUMAB
     Indication: DIABETIC RETINOPATHY
     Route: 050
  12. LUCENTIS [Suspect]
     Active Substance: RANIBIZUMAB
     Indication: TYPE 2 DIABETES MELLITUS
  13. TRAVATAN [Concomitant]
     Active Substance: TRAVOPROST
     Dosage: GTT PM OU
     Route: 047
  14. VIGAMOX [Concomitant]
     Active Substance: MOXIFLOXACIN HYDROCHLORIDE
     Dosage: QID OD
     Route: 065
  15. AVASTIN [Suspect]
     Active Substance: BEVACIZUMAB
     Indication: DIABETIC RETINOPATHY
  16. AVASTIN [Suspect]
     Active Substance: BEVACIZUMAB
     Indication: DIABETIC RETINAL OEDEMA
  17. AVASTIN [Suspect]
     Active Substance: BEVACIZUMAB
     Indication: TYPE 2 DIABETES MELLITUS
  18. DIOVAN [Concomitant]
     Active Substance: VALSARTAN
     Route: 048
  19. OMEGA 3 FATTY ACIDS [Concomitant]
     Active Substance: OMEGA-3 FATTY ACIDS
  20. ZYLET [Concomitant]
     Active Substance: LOTEPREDNOL ETABONATE\TOBRAMYCIN
  21. PLAVIX [Concomitant]
     Active Substance: CLOPIDOGREL BISULFATE
     Route: 048
  22. CRESTOR [Concomitant]
     Active Substance: ROSUVASTATIN CALCIUM
     Route: 048
  23. LUCENTIS [Suspect]
     Active Substance: RANIBIZUMAB
     Indication: DIABETIC RETINOPATHY
  24. PILOCARPINE. [Concomitant]
     Active Substance: PILOCARPINE
     Dosage: 2% GTT TID OD
     Route: 047
  25. AVASTIN [Suspect]
     Active Substance: BEVACIZUMAB
     Indication: DIABETIC RETINOPATHY
     Dosage: OS
     Route: 050
     Dates: start: 20120216
  26. MYDRIACYL [Concomitant]
     Active Substance: TROPICAMIDE
     Route: 065

REACTIONS (10)
  - Retinal haemorrhage [Unknown]
  - Night blindness [Unknown]
  - Macular oedema [Unknown]
  - Retinal aneurysm [Unknown]
  - Cystoid macular oedema [Unknown]
  - Drug ineffective [Unknown]
  - Vision blurred [Unknown]
  - Visual impairment [Unknown]
  - Visual acuity reduced [Unknown]
  - Maculopathy [Unknown]

NARRATIVE: CASE EVENT DATE: 20130613
